FAERS Safety Report 9024577 (Version 1)
Quarter: 2013Q1

REPORT INFORMATION
  Report Type: Spontaneous
  Country: TW (occurrence: None)
  Receive Date: 20130103
  Receipt Date: 20130103
  Transmission Date: 20140127
  Serious: Yes (Hospitalization)
  Sender: FDA-Public Use
  Company Number: NSR_00761_2012

PATIENT
  Age: 30 Year
  Sex: Male

DRUGS (8)
  1. LAMOTRIGINE (LAMOTRIGINE) [Suspect]
     Indication: MANIA
  2. LAMOTRIGINE (LAMOTRIGINE) [Suspect]
     Indication: IRRITABILITY
  3. CHLORPROMAZINE [Suspect]
     Indication: MANIA
     Dosage: 200 AND 400 MG PER DAY, (200 MG, [H.S.])
  4. ALPRAZOLAM [Concomitant]
  5. ZOLPIDEM [Concomitant]
  6. LITHIUM [Concomitant]
  7. SULPRIRIDE [Concomitant]
  8. CARBAMAZEPINE [Concomitant]

REACTIONS (7)
  - Toxic epidermal necrolysis [None]
  - Photosensitivity reaction [None]
  - Mania [None]
  - Disease recurrence [None]
  - Stab wound [None]
  - Dehydration [None]
  - Abnormal behaviour [None]
